FAERS Safety Report 7359296-9 (Version None)
Quarter: 2011Q1

REPORT INFORMATION
  Report Type: 
  Country: None (occurrence: None)
  Receive Date: 20110317
  Receipt Date: 20091027
  Transmission Date: 20110831
  Serious: Yes (Other)
  Sender: FDA-Public Use
  Company Number: US-PFIZER INC-2009260583

PATIENT

DRUGS (1)
  1. NORVASC [Suspect]

REACTIONS (1)
  - INTESTINAL ISCHAEMIA [None]
